FAERS Safety Report 9135870 (Version 1)
Quarter: 2013Q1

REPORT INFORMATION
  Report Type: Spontaneous
  Country: US (occurrence: US)
  Receive Date: 20130304
  Receipt Date: 20130304
  Transmission Date: 20140127
  Serious: Yes (Hospitalization)
  Sender: FDA-Public Use
  Company Number: US-ALEXION-A201300286

PATIENT
  Age: 57 Year
  Sex: Male
  Weight: 90.7 kg

DRUGS (7)
  1. SOLIRIS 300MG [Suspect]
     Indication: HAEMOLYTIC URAEMIC SYNDROME
     Dosage: UNK
     Route: 042
     Dates: start: 20120220, end: 20130128
  2. NOVOLIN NPH [Concomitant]
     Dosage: 7 UT, BID
     Route: 058
  3. AMLODIPINE [Concomitant]
     Dosage: 10 MG, QD
     Route: 048
  4. FUROSEMIDE [Concomitant]
     Dosage: 80 MG, BID
     Route: 048
  5. ASPIRIN [Concomitant]
     Dosage: 81 MG, QD
     Route: 048
  6. LABETALOL [Concomitant]
     Dosage: 600 MG, BID
     Route: 048
  7. PRAVASTATIN [Concomitant]
     Dosage: 40 MG, QD
     Route: 048

REACTIONS (3)
  - Musculoskeletal stiffness [Recovered/Resolved]
  - Nasopharyngitis [Unknown]
  - Pneumonia [Unknown]
